FAERS Safety Report 5392910-6 (Version None)
Quarter: 2007Q3

REPORT INFORMATION
  Report Type: 
  Country: None (occurrence: None)
  Receive Date: 20070721
  Receipt Date: 20070709
  Transmission Date: 20080115
  Serious: Yes (Hospitalization)
  Sender: FDA-Public Use
  Company Number: GB-PFIZER INC-2007058417

PATIENT
  Sex: Male

DRUGS (1)
  1. CHAMPIX [Suspect]
     Route: 048

REACTIONS (5)
  - ARRHYTHMIA [None]
  - HEART RATE INCREASED [None]
  - HYPOTENSION [None]
  - RESPIRATORY TRACT INFECTION [None]
  - VIRAL INFECTION [None]
